FAERS Safety Report 11174083 (Version 2)
Quarter: 2016Q4

REPORT INFORMATION
  Report Type: Spontaneous
  Country: FR (occurrence: FR)
  Receive Date: 20150609
  Receipt Date: 20161025
  Transmission Date: 20170206
  Serious: Yes (Death)
  Sender: FDA-Public Use
  Company Number: FR-JNJFOC-20150604405

PATIENT
  Age: 63 Year
  Sex: Male

DRUGS (1)
  1. IMBRUVICA [Suspect]
     Active Substance: IBRUTINIB
     Indication: CHRONIC LYMPHOCYTIC LEUKAEMIA
     Dosage: 3 CAPSULES A DAY
     Route: 048
     Dates: start: 201503

REACTIONS (1)
  - Peritoneal haemorrhage [Fatal]
